FAERS Safety Report 8565176-3 (Version None)
Quarter: 2012Q3

REPORT INFORMATION
  Report Type: 
  Country: None (occurrence: None)
  Receive Date: 20120803
  Receipt Date: 20120713
  Transmission Date: 20120928
  Serious: No
  Sender: FDA-Public Use
  Company Number: US-009507513-1207USA011013

PATIENT

DRUGS (1)
  1. CLARINEX [Suspect]
     Dosage: UNK
     Dates: start: 20120616, end: 20120713

REACTIONS (2)
  - SOMNOLENCE [None]
  - INSOMNIA [None]
